FAERS Safety Report 5310459-3 (Version None)
Quarter: 2007Q2

REPORT INFORMATION
  Report Type: 
  Country: None (occurrence: None)
  Receive Date: 20070427
  Receipt Date: 20070416
  Transmission Date: 20071010
  Serious: Yes (Hospitalization)
  Sender: FDA-Public Use
  Company Number: FR-PFIZER INC-2007032061

PATIENT
  Sex: Female

DRUGS (3)
  1. ATARAX [Suspect]
     Dosage: TEXT:1 DF
     Route: 048
  2. ZOLOFT [Suspect]
     Dosage: TEXT:1 DF
     Route: 048
  3. XANAX [Concomitant]

REACTIONS (3)
  - CAESAREAN SECTION [None]
  - PREMATURE LABOUR [None]
  - RETROPLACENTAL HAEMATOMA [None]
